FAERS Safety Report 26129634 (Version 1)
Quarter: 2025Q4

REPORT INFORMATION
  Report Type: Spontaneous
  Country: KR (occurrence: KR)
  Receive Date: 20251208
  Receipt Date: 20251208
  Transmission Date: 20260118
  Serious: Yes (Death, Other)
  Sender: AMGEN
  Company Number: KR-KYOWAKIRIN-2025KK023049

PATIENT
  Age: 61 Year
  Sex: Male

DRUGS (18)
  1. NEULASTA [Suspect]
     Active Substance: PEGFILGRASTIM
     Indication: Cutaneous T-cell lymphoma
     Dosage: UNK, 1X/3 WEEKS
     Route: 065
     Dates: start: 20201103, end: 20210218
  2. ASPARAGINASE [Suspect]
     Active Substance: ASPARAGINASE
     Indication: Cutaneous T-cell lymphoma
     Dosage: UNK
     Route: 065
     Dates: start: 20240724, end: 20240724
  3. ASPARAGINASE [Suspect]
     Active Substance: ASPARAGINASE
     Dosage: UNK
     Route: 065
     Dates: start: 20240905
  4. POTELIGEO [Suspect]
     Active Substance: MOGAMULIZUMAB-KPKC
     Indication: Cutaneous T-cell lymphoma
     Dosage: UNK, 1X/WEEK
     Route: 065
     Dates: start: 20240426, end: 20240517
  5. POTELIGEO [Suspect]
     Active Substance: MOGAMULIZUMAB-KPKC
     Dosage: UNK, 1X/2 WEEKS
     Route: 065
     Dates: start: 20240524, end: 20240607
  6. POTELIGEO [Suspect]
     Active Substance: MOGAMULIZUMAB-KPKC
     Dosage: UNK, 1X/2 WEEKS
     Route: 065
     Dates: start: 20240621, end: 20240705
  7. CYCLOPHOSPHAMIDE [Suspect]
     Active Substance: CYCLOPHOSPHAMIDE
     Indication: Cutaneous T-cell lymphoma
     Dosage: UNK, 1X/3 WEEKS
     Route: 065
     Dates: start: 20201103, end: 20210218
  8. DOXORUBICIN [Suspect]
     Active Substance: DOXORUBICIN
     Indication: Cutaneous T-cell lymphoma
     Dosage: UNK, 1X/3 WEEKS
     Route: 065
     Dates: start: 20201103, end: 20210218
  9. VINCRISTINE [Suspect]
     Active Substance: VINCRISTINE
     Indication: Cutaneous T-cell lymphoma
     Dosage: UNK, 1X/3 WEEKS
     Route: 065
     Dates: start: 20201103, end: 20210218
  10. PREDNISOLONE [Suspect]
     Active Substance: PREDNISOLONE
     Indication: Cutaneous T-cell lymphoma
     Dosage: UNK, 1X/3 WEEKS
     Route: 065
     Dates: start: 20201103, end: 20210218
  11. DEXAMETHASONE [Suspect]
     Active Substance: DEXAMETHASONE
     Indication: Cutaneous T-cell lymphoma
     Dosage: UNK
     Route: 065
     Dates: start: 20240724, end: 20240724
  12. DEXAMETHASONE [Suspect]
     Active Substance: DEXAMETHASONE
     Dosage: UNK
     Route: 065
     Dates: start: 20240905
  13. METHOTREXATE [Suspect]
     Active Substance: METHOTREXATE
     Indication: Cutaneous T-cell lymphoma
     Dosage: UNK
     Route: 065
     Dates: start: 20240724, end: 20240724
  14. METHOTREXATE [Suspect]
     Active Substance: METHOTREXATE
     Dosage: UNK
     Route: 065
     Dates: start: 20240905
  15. IFOSFAMIDE [Suspect]
     Active Substance: IFOSFAMIDE
     Indication: Cutaneous T-cell lymphoma
     Dosage: UNK
     Route: 065
     Dates: start: 20240724, end: 20240724
  16. IFOSFAMIDE [Suspect]
     Active Substance: IFOSFAMIDE
     Dosage: UNK
     Route: 065
     Dates: start: 20240905
  17. ETOPOSIDE [Suspect]
     Active Substance: ETOPOSIDE
     Indication: Cutaneous T-cell lymphoma
     Dosage: UNK
     Route: 065
     Dates: start: 20240724, end: 20240724
  18. ETOPOSIDE [Suspect]
     Active Substance: ETOPOSIDE
     Dosage: UNK
     Route: 065
     Dates: start: 20240905

REACTIONS (6)
  - Septic shock [Fatal]
  - Oral herpes [Unknown]
  - Disease recurrence [Unknown]
  - Disease progression [Unknown]
  - Asthenia [Unknown]
  - Pain of skin [Unknown]

NARRATIVE: CASE EVENT DATE: 20201125
